FAERS Safety Report 25444980 (Version 1)
Quarter: 2025Q2

REPORT INFORMATION
  Report Type: Spontaneous
  Country: US (occurrence: None)
  Receive Date: 20250616
  Receipt Date: 20250616
  Transmission Date: 20250716
  Serious: Yes (Hospitalization)
  Sender: FDA-CTU
  Company Number: None

PATIENT
  Age: 39 Year
  Sex: Female

DRUGS (1)
  1. LETYBO [Suspect]
     Active Substance: LETIBOTULINUMTOXINA-WLBG
     Route: 023
     Dates: start: 20250606, end: 20250606

REACTIONS (6)
  - Dysphagia [None]
  - Dyspnoea [None]
  - Muscular weakness [None]
  - Eyelid ptosis [None]
  - Facial paresis [None]
  - Botulism [None]

NARRATIVE: CASE EVENT DATE: 20250606
